FAERS Safety Report 22365661 (Version 2)
Quarter: 2023Q2

REPORT INFORMATION
  Report Type: Report from Study
  Country: CN (occurrence: CN)
  Receive Date: 20230525
  Receipt Date: 20230601
  Transmission Date: 20230722
  Serious: Yes (Hospitalization)
  Sender: FDA-Public Use
  Company Number: CN-BoehringerIngelheim-2023-BI-237985

PATIENT
  Age: 72 Year
  Sex: Female
  Weight: 51 kg

DRUGS (5)
  1. TENECTEPLASE [Suspect]
     Active Substance: TENECTEPLASE
     Indication: Ischaemic stroke
     Dosage: MOST RECENT DOSE 10/APR/2023
     Route: 042
     Dates: start: 20230410, end: 20230410
  2. TELMISARTAN [Concomitant]
     Active Substance: TELMISARTAN
     Indication: Drug therapy
     Route: 048
     Dates: start: 202302
  3. ROSUVASTATIN CALCIUM [Concomitant]
     Active Substance: ROSUVASTATIN CALCIUM
     Indication: Antiplatelet therapy
     Route: 048
  4. ASPIRIN [Concomitant]
     Active Substance: ASPIRIN
     Indication: Antiplatelet therapy
     Route: 048
     Dates: start: 20230411
  5. INSULIN ASPART [Concomitant]
     Active Substance: INSULIN ASPART
     Indication: Hypoglycaemia
     Route: 055
     Dates: start: 2019

REACTIONS (2)
  - Transient ischaemic attack [Recovered/Resolved]
  - Diabetic macroangiopathy [Not Recovered/Not Resolved]

NARRATIVE: CASE EVENT DATE: 20230416
